FAERS Safety Report 7565516-8 (Version None)
Quarter: 2011Q2

REPORT INFORMATION
  Report Type: 
  Country: None (occurrence: None)
  Receive Date: 20110623
  Receipt Date: 20110617
  Transmission Date: 20111010
  Serious: No
  Sender: FDA-Public Use
  Company Number: US-BIOGENIDEC-2011BI022490

PATIENT
  Sex: Female

DRUGS (3)
  1. TYSABRI [Suspect]
     Indication: MULTIPLE SCLEROSIS
     Route: 042
     Dates: start: 20091104
  2. TYSABRI [Suspect]
     Route: 042
     Dates: start: 20080505, end: 20080630
  3. TYSABRI [Suspect]
     Route: 042
     Dates: start: 20110601

REACTIONS (4)
  - ANXIETY DISORDER [None]
  - MOTION SICKNESS [None]
  - TOOTH DISCOLOURATION [None]
  - TOOTH FRACTURE [None]
